FAERS Safety Report 7479298-1 (Version None)
Quarter: 2011Q2

REPORT INFORMATION
  Report Type: 
  Country: None (occurrence: None)
  Receive Date: 20110513
  Receipt Date: 20110509
  Transmission Date: 20111010
  Serious: Yes (Hospitalization)
  Sender: FDA-Public Use
  Company Number: FR-PFIZER INC-2011098489

PATIENT
  Age: 55 Year
  Sex: Male

DRUGS (8)
  1. ACETAMINOPHEN [Concomitant]
     Dosage: UNK
  2. LASIX [Concomitant]
     Dosage: UNK
  3. PLAVIX [Concomitant]
     Dosage: UNK
  4. ASPIRIN [Concomitant]
     Dosage: UNK
  5. ARIXTRA [Concomitant]
     Dosage: UNK
  6. ATORVASTATIN CALCIUM [Suspect]
     Dosage: 80 MG, UNK
     Route: 048
     Dates: start: 20110315, end: 20110402
  7. DIFFU K [Concomitant]
     Dosage: UNK
  8. BISOPROLOL FUMARATE [Concomitant]
     Dosage: UNK

REACTIONS (2)
  - RHABDOMYOLYSIS [None]
  - CYTOLYTIC HEPATITIS [None]
